FAERS Safety Report 9495204 (Version 2)
Quarter: 2014Q2

REPORT INFORMATION
  Report Type: Report from Study
  Country: MX (occurrence: MX)
  Receive Date: 20130903
  Receipt Date: 20140603
  Transmission Date: 20141212
  Serious: Yes (Hospitalization, Other)
  Sender: FDA-Public Use
  Company Number: PHHY2013MX096071

PATIENT
  Age: 72 Year
  Sex: Female

DRUGS (6)
  1. ACLASTA [Suspect]
     Indication: BONE DECALCIFICATION
     Dosage: 2 INJECTIONS OF 5 MG/100ML, ANNUAL (1 DF EVERY 6 MONTHS)
     Route: 042
     Dates: start: 201102
  2. ACLASTA [Suspect]
     Indication: OSTEOPOROSIS
     Dosage: 1 INJECTION OF 5 MG/100ML, ANNUAL
     Route: 042
     Dates: start: 2012
  3. ACLASTA [Suspect]
     Dosage: 1 INJECTION OF 5 MG/100ML, ANNUAL
     Route: 042
     Dates: start: 2013
  4. SIES [Concomitant]
     Indication: PERIPHERAL VASCULAR DISORDER
     Dosage: 2 UKN, DAILY
     Dates: start: 201405
  5. RANTUDIL [Concomitant]
     Indication: PAIN
     Dosage: 2 UKN, DAILY
     Dates: start: 201405
  6. RANTUDIL [Concomitant]
     Indication: INFLAMMATION

REACTIONS (6)
  - Bronchitis [Recovered/Resolved]
  - Eyelid ptosis [Unknown]
  - Diverticulum [Not Recovered/Not Resolved]
  - Skin disorder [Unknown]
  - Oedema peripheral [Unknown]
  - Inappropriate schedule of drug administration [Recovered/Resolved]
